FAERS Safety Report 23354189 (Version 1)
Quarter: 2024Q1

REPORT INFORMATION
  Report Type: Spontaneous
  Country: CA (occurrence: CA)
  Receive Date: 20240101
  Receipt Date: 20240101
  Transmission Date: 20240410
  Serious: Yes (Hospitalization, Other)
  Sender: FDA-Public Use
  Company Number: CA-AUROBINDO-AUR-APL-2023-081470

PATIENT
  Age: 6 Year
  Sex: Male
  Weight: 23 kg

DRUGS (4)
  1. AMOXICILLIN [Suspect]
     Active Substance: AMOXICILLIN
     Indication: Tooth infection
     Dosage: 350 MILLIGRAM, 3 TIMES A DAY
     Route: 065
  2. AMOXICILLIN [Suspect]
     Active Substance: AMOXICILLIN
     Indication: Antibiotic therapy
  3. ADVIL [Concomitant]
     Active Substance: IBUPROFEN
     Indication: Product used for unknown indication
     Dosage: UNK
     Route: 065
  4. BENADRYL [Concomitant]
     Active Substance: DIPHENHYDRAMINE HYDROCHLORIDE
     Indication: Product used for unknown indication
     Dosage: UNK
     Route: 065

REACTIONS (6)
  - Attention deficit hyperactivity disorder [Recovering/Resolving]
  - Dysarthria [Recovering/Resolving]
  - Eye movement disorder [Recovering/Resolving]
  - Learning disorder [Recovering/Resolving]
  - Psychomotor hyperactivity [Recovering/Resolving]
  - Tic [Recovering/Resolving]
